FAERS Safety Report 21962568 (Version 1)
Quarter: 2023Q1

REPORT INFORMATION
  Report Type: Report from Study
  Country: IT (occurrence: IT)
  Receive Date: 20230207
  Receipt Date: 20230207
  Transmission Date: 20230418
  Serious: Yes (Hospitalization)
  Sender: FDA-Public Use
  Company Number: None

PATIENT
  Age: 7 Year
  Sex: Female
  Weight: 19 kg

DRUGS (4)
  1. IDARUBICIN [Suspect]
     Active Substance: IDARUBICIN
     Dosage: 8 MG PER 3 GG
     Route: 042
     Dates: start: 20230104, end: 20230106
  2. ETOPOSIDE [Suspect]
     Active Substance: ETOPOSIDE
     Indication: Acute myeloid leukaemia
     Dosage: 80 MG PER 5 GG
     Route: 042
     Dates: start: 20230104, end: 20230108
  3. CYTARABINE [Suspect]
     Active Substance: CYTARABINE
     Dosage: 160 MG PER 7GG
     Route: 042
     Dates: start: 20230104, end: 20230110
  4. BACTRIM [Concomitant]
     Active Substance: SULFAMETHOXAZOLE\TRIMETHOPRIM
     Dosage: BACTRIM PER 2 SABATO E DOMENICA
     Route: 048
     Dates: start: 20221209

REACTIONS (3)
  - Febrile bone marrow aplasia [Recovered/Resolved]
  - Pyrexia [Recovered/Resolved]
  - Mucosal inflammation [Recovering/Resolving]

NARRATIVE: CASE EVENT DATE: 20230115
